FAERS Safety Report 14946175 (Version 24)
Quarter: 2019Q2

REPORT INFORMATION
  Report Type: Report from Study
  Country: CA (occurrence: CA)
  Receive Date: 20180529
  Receipt Date: 20190527
  Transmission Date: 20190711
  Serious: Yes (Other)
  Sender: FDA-Public Use
  Company Number: PHHY2016CA073976

PATIENT
  Age: 74 Year
  Sex: Female

DRUGS (20)
  1. SANDOSTATIN LAR DEPOT [Suspect]
     Active Substance: OCTREOTIDE ACETATE
     Dosage: 30 MG, QMO (EVERY 4 WEEK)
     Route: 030
  2. PARIET [Concomitant]
     Active Substance: RABEPRAZOLE SODIUM
     Indication: PRODUCT USED FOR UNKNOWN INDICATION
     Dosage: 20 MG, UNK
     Route: 065
  3. METOPROLOL. [Suspect]
     Active Substance: METOPROLOL
     Dosage: 25 MG, UNK
     Route: 048
     Dates: start: 2018
  4. ASA [Concomitant]
     Active Substance: ASPIRIN
     Indication: PRODUCT USED FOR UNKNOWN INDICATION
     Route: 065
  5. ALPRAZOLAM. [Concomitant]
     Active Substance: ALPRAZOLAM
     Indication: PRODUCT USED FOR UNKNOWN INDICATION
     Dosage: 25 MG, IRD
     Route: 065
  6. SANDOSTATIN [Suspect]
     Active Substance: OCTREOTIDE ACETATE
     Indication: NEUROENDOCRINE TUMOUR
     Dosage: UNK UNK, ONCE/SINGLE
     Route: 058
     Dates: start: 20150309, end: 20150309
  7. BENADRYL [Concomitant]
     Active Substance: DIPHENHYDRAMINE HYDROCHLORIDE
     Indication: PRODUCT USED FOR UNKNOWN INDICATION
     Dosage: 25 MG, IRD
     Route: 065
  8. VERAPAMIL [Suspect]
     Active Substance: VERAPAMIL HYDROCHLORIDE
     Indication: PRODUCT USED FOR UNKNOWN INDICATION
     Route: 065
  9. METOPROLOL. [Suspect]
     Active Substance: METOPROLOL
     Indication: HEART RATE INCREASED
     Dosage: 1 DF, QD
     Route: 048
  10. VITAMIN B12 [Concomitant]
     Active Substance: CYANOCOBALAMIN
     Indication: PRODUCT USED FOR UNKNOWN INDICATION
     Dosage: QD
     Route: 065
  11. SANDOSTATIN LAR DEPOT [Suspect]
     Active Substance: OCTREOTIDE ACETATE
     Indication: NEUROENDOCRINE TUMOUR
     Dosage: 30 MG, QMO (ONCE A MONTH)
     Route: 030
     Dates: start: 20150309
  12. METFORMIN [Concomitant]
     Active Substance: METFORMIN HYDROCHLORIDE
     Indication: PRODUCT USED FOR UNKNOWN INDICATION
     Dosage: 500 MG, BID
     Route: 065
  13. MICARDIS [Concomitant]
     Active Substance: TELMISARTAN
     Indication: PRODUCT USED FOR UNKNOWN INDICATION
     Dosage: 80 MG, QD
     Route: 065
  14. NEXIUM CONTROL [Concomitant]
     Active Substance: ESOMEPRAZOLE MAGNESIUM
     Indication: PRODUCT USED FOR UNKNOWN INDICATION
     Dosage: 40 MG, BID
     Route: 065
  15. CRESTOR [Concomitant]
     Active Substance: ROSUVASTATIN CALCIUM
     Indication: PRODUCT USED FOR UNKNOWN INDICATION
     Dosage: 20 MG, BID
     Route: 065
  16. METOPROLOL. [Suspect]
     Active Substance: METOPROLOL
     Dosage: 3 DF (1.5 AM AND 1.5 H.S)
     Route: 048
  17. METOPROLOL. [Suspect]
     Active Substance: METOPROLOL
     Dosage: 50 MG, UNK
     Route: 048
  18. LUTETIUM (LU 177) [Suspect]
     Active Substance: LUTETIUM LU-177
     Indication: PRODUCT USED FOR UNKNOWN INDICATION
     Route: 065
  19. METOPROLOL. [Suspect]
     Active Substance: METOPROLOL
     Dosage: 2.5 DF (1 TABLET AM, 1/2 TABLET PM AND 1 AT BED TIME )
     Route: 048
  20. BUSCOPAN [Concomitant]
     Active Substance: BUTYLSCOPOLAMINE BROMIDE
     Indication: PRODUCT USED FOR UNKNOWN INDICATION
     Dosage: 10 MG, IRD
     Route: 065

REACTIONS (29)
  - Ovarian mass [Unknown]
  - Blood pressure increased [Recovering/Resolving]
  - Pain [Unknown]
  - Cough [Unknown]
  - Fatigue [Unknown]
  - Pain in extremity [Unknown]
  - Contusion [Unknown]
  - Abdominal pain [Recovered/Resolved]
  - Supraventricular tachycardia [Recovered/Resolved]
  - Cystitis [Not Recovered/Not Resolved]
  - Peripheral swelling [Unknown]
  - Body temperature decreased [Unknown]
  - Nasopharyngitis [Unknown]
  - Supraventricular tachycardia [Recovered/Resolved]
  - Gastrointestinal motility disorder [Unknown]
  - Palpitations [Unknown]
  - Urinary tract infection [Recovering/Resolving]
  - Nasal congestion [Unknown]
  - Blood pressure diastolic decreased [Unknown]
  - Heart rate irregular [Unknown]
  - Supraventricular tachycardia [Recovered/Resolved]
  - Rash pruritic [Recovering/Resolving]
  - Supraventricular tachycardia [Unknown]
  - Renal impairment [Unknown]
  - Heart rate increased [Unknown]
  - Gastrointestinal neoplasm [Unknown]
  - Musculoskeletal pain [Unknown]
  - Alopecia [Unknown]
  - Diarrhoea [Unknown]

NARRATIVE: CASE EVENT DATE: 20150630
